FAERS Safety Report 8202362-6 (Version None)
Quarter: 2012Q1

REPORT INFORMATION
  Report Type: 
  Country: None (occurrence: None)
  Receive Date: 20120312
  Receipt Date: 20110819
  Transmission Date: 20120608
  Serious: Yes (Other)
  Sender: FDA-Public Use
  Company Number: US-ABBOTT-11P-163-0841542-00

PATIENT
  Sex: Female
  Weight: 63.56 kg

DRUGS (8)
  1. AMITRIPTYLINE HCL [Concomitant]
     Indication: MIGRAINE
  2. PERCOCET [Concomitant]
     Indication: PAIN
  3. AMITRIPTYLINE HCL [Concomitant]
     Indication: SLEEP DISORDER
  4. NEURONTIN [Suspect]
     Indication: NERVE INJURY
     Dates: start: 20070101
  5. DILANTIN [Suspect]
     Indication: EPILEPSY
     Route: 048
     Dates: start: 20110115
  6. TOPAMAX [Concomitant]
     Indication: MIGRAINE
  7. ESTRADIOL [Concomitant]
     Indication: PRODUCT USED FOR UNKNOWN INDICATION
  8. DEPAKOTE [Suspect]
     Indication: EPILEPSY
     Route: 048
     Dates: start: 20090101

REACTIONS (1)
  - CONVULSION [None]
